FAERS Safety Report 21325620 (Version 1)
Quarter: 2022Q3

REPORT INFORMATION
  Report Type: Spontaneous
  Country: US (occurrence: None)
  Receive Date: 20220912
  Receipt Date: 20220912
  Transmission Date: 20221027
  Serious: Yes (Hospitalization)
  Sender: FDA-Public Use
  Company Number: None

PATIENT
  Sex: Male

DRUGS (1)
  1. STELARA [Suspect]
     Active Substance: USTEKINUMAB
     Indication: Crohn^s disease
     Dosage: 250ML AND INFUSE 520MG INTRAVENOUSLY OVER AT LEAST 1 HOUR AS INDUCTION DOSE.?
     Route: 042
     Dates: start: 20220727

REACTIONS (2)
  - Asthenia [None]
  - Blood sodium decreased [None]
